FAERS Safety Report 24140764 (Version 4)
Quarter: 2024Q3

REPORT INFORMATION
  Report Type: Spontaneous
  Country: AU (occurrence: AU)
  Receive Date: 20240726
  Receipt Date: 20240910
  Transmission Date: 20241017
  Serious: Yes (Hospitalization, Other)
  Sender: Harrow Health
  Company Number: AU-IMP-2024000494

PATIENT
  Age: 55 Year
  Sex: Female

DRUGS (1)
  1. MAXIDEX [Suspect]
     Active Substance: DEXAMETHASONE
     Indication: Product used for unknown indication
     Dosage: QID, 01 EYE DROPS BOTTLE
     Route: 047

REACTIONS (14)
  - Myocardial infarction [Unknown]
  - Cataract [Unknown]
  - Angina pectoris [Unknown]
  - Pneumonia [Unknown]
  - Palpitations [Unknown]
  - Chest pain [Unknown]
  - Dizziness [Unknown]
  - Headache [Unknown]
  - Glare [Unknown]
  - Pain in jaw [Unknown]
  - Pain [Unknown]
  - Cardiac disorder [Unknown]
  - Intraocular pressure test abnormal [Unknown]
  - Nausea [Unknown]

NARRATIVE: CASE EVENT DATE: 20240101
